FAERS Safety Report 9907234 (Version 1)
Quarter: 2014Q1

REPORT INFORMATION
  Report Type: Spontaneous
  Country: GB (occurrence: GB)
  Receive Date: 20140218
  Receipt Date: 20140218
  Transmission Date: 20141002
  Serious: Yes (Other)
  Sender: FDA-Public Use
  Company Number: GB-MYLANLABS-2014S1002611

PATIENT
  Age: 23 Year
  Sex: Female
  Weight: 104.19 kg

DRUGS (4)
  1. VENLAFAXINE HYDROCHLORIDE [Suspect]
     Indication: DEPRESSION
     Dosage: DOSE REDUCED ON GP^S ADVICE.
     Route: 048
  2. VENLAFAXINE HYDROCHLORIDE [Suspect]
     Indication: DEPRESSION
     Dosage: DOSE REDUCED ON GP^S ADVICE.
     Route: 048
  3. VENLAFAXINE HYDROCHLORIDE [Suspect]
     Indication: DEPRESSION
     Dosage: DOSE REDUCED ON GP^S ADVICE.
     Route: 048
  4. VENLAFAXINE HYDROCHLORIDE [Suspect]
     Indication: DEPRESSION
     Dosage: DOSE REDUCED AND CEASED ON GP^S ADVICE.
     Route: 048
     Dates: end: 20140122

REACTIONS (7)
  - Dizziness [Not Recovered/Not Resolved]
  - Muscle twitching [Not Recovered/Not Resolved]
  - Hyperhidrosis [Not Recovered/Not Resolved]
  - Withdrawal syndrome [Not Recovered/Not Resolved]
  - Headache [Not Recovered/Not Resolved]
  - Paraesthesia [Not Recovered/Not Resolved]
  - Muscle tightness [Not Recovered/Not Resolved]
